FAERS Safety Report 21111851 (Version 1)
Quarter: 2022Q3

REPORT INFORMATION
  Report Type: Spontaneous
  Country: IN (occurrence: IN)
  Receive Date: 20220721
  Receipt Date: 20220721
  Transmission Date: 20221027
  Serious: Yes (Other)
  Sender: FDA-Public Use
  Company Number: IN-MYLANLABS-2022M1079568

PATIENT
  Age: 7 Decade
  Sex: Male

DRUGS (3)
  1. PACLITAXEL [Suspect]
     Active Substance: PACLITAXEL
     Indication: Metastatic salivary gland cancer
     Dosage: UNK, THREE TIMES A WEEK
     Route: 065
     Dates: start: 2019, end: 2019
  2. TRASTUZUMAB [Suspect]
     Active Substance: TRASTUZUMAB
     Indication: Metastatic salivary gland cancer
     Dosage: UNK
     Route: 065
  3. CARBOPLATIN [Concomitant]
     Active Substance: CARBOPLATIN
     Indication: Metastatic salivary gland cancer
     Dosage: UNK, THREE TIMES A WEEK
     Route: 065
     Dates: start: 2019, end: 2019

REACTIONS (2)
  - Drug ineffective [Unknown]
  - Disease progression [Unknown]

NARRATIVE: CASE EVENT DATE: 20190101
